FAERS Safety Report 7609342-X (Version None)
Quarter: 2011Q3

REPORT INFORMATION
  Report Type: 
  Country: None (occurrence: None)
  Receive Date: 20110714
  Receipt Date: 20110706
  Transmission Date: 20111222
  Serious: Yes (Other)
  Sender: FDA-Public Use
  Company Number: US-BAYER-2011-059098

PATIENT
  Age: 49 Year
  Sex: Female

DRUGS (2)
  1. MIRENA [Suspect]
     Indication: MENORRHAGIA
     Dosage: 20 MCG/24HR, CONT
     Route: 015
     Dates: start: 20110425, end: 20110630
  2. MEDICATION [Concomitant]

REACTIONS (13)
  - NERVOUSNESS [None]
  - NAUSEA [None]
  - HYPOAESTHESIA [None]
  - PHOTOPHOBIA [None]
  - PRURITUS GENERALISED [None]
  - BACK PAIN [None]
  - PAIN IN EXTREMITY [None]
  - NIPPLE DISORDER [None]
  - PREMENSTRUAL SYNDROME [None]
  - VAGINAL DISCHARGE [None]
  - FEMALE ORGASMIC DISORDER [None]
  - ANGER [None]
  - BREAST TENDERNESS [None]
